FAERS Safety Report 9729111 (Version 1)
Quarter: 2013Q4

REPORT INFORMATION
  Report Type: Spontaneous
  Country: US (occurrence: None)
  Receive Date: 20131203
  Receipt Date: 20131203
  Transmission Date: 20140711
  Serious: No
  Sender: FDA-Public Use
  Company Number: None

PATIENT
  Age: 78 Year
  Sex: Male
  Weight: 104.4 kg

DRUGS (2)
  1. CEFDINIR [Suspect]
  2. DICLOFENAC [Suspect]

REACTIONS (2)
  - Rash [None]
  - Stevens-Johnson syndrome [None]
